FAERS Safety Report 4424838-X (Version None)
Quarter: 2004Q3

REPORT INFORMATION
  Report Type: 
  Country: None (occurrence: None)
  Receive Date: 20040812
  Receipt Date: 20020319
  Transmission Date: 20050211
  Serious: Yes (Hospitalization, Disabling, Other)
  Sender: FDA-Public Use
  Company Number: US-MERCK-0203USA02029

PATIENT
  Age: 70 Year
  Sex: Male
  Weight: 103 kg

DRUGS (13)
  1. VIOXX [Suspect]
     Indication: MONARTHRITIS
     Route: 048
     Dates: start: 20000515, end: 20010101
  2. VIOXX [Suspect]
     Indication: OSTEOARTHRITIS
     Route: 048
     Dates: start: 20000515, end: 20010101
  3. COUMADIN [Concomitant]
     Indication: DEEP VEIN THROMBOSIS
     Route: 065
     Dates: start: 19990601
  4. COUMADIN [Concomitant]
     Indication: MYOCARDIAL INFARCTION
     Route: 065
     Dates: start: 19990601
  5. TYLENOL [Concomitant]
     Route: 065
     Dates: start: 20010101
  6. ASPIRIN [Concomitant]
     Route: 065
  7. ASPIRIN [Concomitant]
     Route: 065
  8. ATENOLOL [Concomitant]
     Route: 065
  9. INDOCIN [Concomitant]
     Route: 065
  10. ISOSORBIDE [Concomitant]
     Indication: CHEST PAIN
     Route: 065
     Dates: start: 19770201, end: 20030901
  11. ISOSORBIDE [Concomitant]
     Indication: HYPERTENSION
     Route: 065
     Dates: start: 19770201, end: 20030901
  12. NITROGLYCERIN [Concomitant]
     Indication: CHEST PAIN
     Route: 065
     Dates: start: 19770201, end: 20030901
  13. NITROGLYCERIN [Concomitant]
     Indication: HYPERTENSION
     Route: 065
     Dates: start: 19770201, end: 20030901

REACTIONS (16)
  - ARRHYTHMIA [None]
  - ARTHRALGIA [None]
  - CARDIAC FAILURE CONGESTIVE [None]
  - CARDIAC VALVE DISEASE [None]
  - CAROTID ARTERY DISEASE [None]
  - CAROTID ARTERY STENOSIS [None]
  - DEEP VEIN THROMBOSIS [None]
  - EMOTIONAL DISTRESS [None]
  - GOUT [None]
  - ISCHAEMIC CARDIOMYOPATHY [None]
  - MYOCARDIAL INFARCTION [None]
  - NECK PAIN [None]
  - PLATELET COUNT DECREASED [None]
  - RENAL FAILURE CHRONIC [None]
  - SINUSITIS [None]
  - SLEEP APNOEA SYNDROME [None]
